FAERS Safety Report 8308479-X (Version None)
Quarter: 2012Q2

REPORT INFORMATION
  Report Type: 
  Country: None (occurrence: None)
  Receive Date: 20120424
  Receipt Date: 20120422
  Transmission Date: 20120825
  Serious: Yes (Death)
  Sender: FDA-Public Use
  Company Number: IL-ROCHE-1061803

PATIENT
  Age: 40 Year
  Sex: Male

DRUGS (3)
  1. ALIMTA [Suspect]
     Indication: NON-SMALL CELL LUNG CANCER
  2. AVASTIN [Suspect]
     Indication: NON-SMALL CELL LUNG CANCER
  3. CISPLATIN [Suspect]
     Indication: NON-SMALL CELL LUNG CANCER

REACTIONS (3)
  - NON-SMALL CELL LUNG CANCER [None]
  - NEOPLASM PROGRESSION [None]
  - DISEASE PROGRESSION [None]
